FAERS Safety Report 24443059 (Version 2)
Quarter: 2024Q4

REPORT INFORMATION
  Report Type: Report from Study
  Country: US (occurrence: US)
  Receive Date: 20241016
  Receipt Date: 20241017
  Transmission Date: 20250115
  Serious: No
  Sender: ROCHE
  Company Number: US-ROCHE-3578436

PATIENT
  Age: 30 Year
  Sex: Male

DRUGS (2)
  1. HEMLIBRA [Suspect]
     Active Substance: EMICIZUMAB-KXWH
     Indication: Haemophilia
     Dosage: INJECT 2.4ML SUBCUTANEOUSLY EVERY 14 DAY(S) IN 2 SEPERATE INJECTION SITES. (2ML FROM TWO 150MG VIALS
     Route: 058
  2. HEMLIBRA [Suspect]
     Active Substance: EMICIZUMAB-KXWH
     Dosage: INJECT 2.4ML SUBCUTANEOUSLY EVERY 14 DAY(S) IN 2 SEPERATE INJECTION SITES. (2ML FROM TWO 150MG VIALS
     Route: 065

REACTIONS (1)
  - Memory impairment [Unknown]
